FAERS Safety Report 11682637 (Version 3)
Quarter: 2015Q4

REPORT INFORMATION
  Report Type: Spontaneous
  Country: JP (occurrence: JP)
  Receive Date: 20151029
  Receipt Date: 20151120
  Transmission Date: 20160304
  Serious: Yes (Hospitalization, Other)
  Sender: FDA-Public Use
  Company Number: JP-PFIZER INC-2015360364

PATIENT
  Age: 55 Year
  Sex: Male

DRUGS (15)
  1. TAKEPRON OD [Concomitant]
     Active Substance: LANSOPRAZOLE
     Dosage: UNK
  2. ARTIST [Concomitant]
     Active Substance: CARVEDILOL
     Dosage: 37.5 MG, DAILY
     Dates: start: 20150702
  3. WARFARIN [Concomitant]
     Active Substance: WARFARIN
     Dosage: UNK
  4. SENNOSIDE [Concomitant]
     Active Substance: SENNOSIDES
     Dosage: UNK
  5. ANCARON [Suspect]
     Active Substance: AMIODARONE HYDROCHLORIDE
     Dosage: 100 MG, DAILY
     Route: 048
     Dates: start: 20130418, end: 20130817
  6. ANCARON [Suspect]
     Active Substance: AMIODARONE HYDROCHLORIDE
     Indication: PROPHYLAXIS
     Dosage: 100 MG, 2X/DAY
     Route: 048
     Dates: start: 20130407, end: 20130417
  7. SILECE [Concomitant]
     Active Substance: FLUNITRAZEPAM
     Dosage: UNK
  8. AMIODARONE HCL [Suspect]
     Active Substance: AMIODARONE HYDROCHLORIDE
     Indication: PROPHYLAXIS
     Dosage: 100 MG, DAILY
     Route: 048
     Dates: start: 20130818, end: 20150605
  9. ARTIST [Concomitant]
     Active Substance: CARVEDILOL
     Dosage: 35 MG, DAILY
     Dates: start: 20150627
  10. ARTIST [Concomitant]
     Active Substance: CARVEDILOL
     Dosage: 40 MG, DAILY
     Dates: start: 20150706
  11. MAGLAX [Concomitant]
     Active Substance: MAGNESIUM OXIDE
     Dosage: UNK
  12. BAYASPIRIN [Concomitant]
     Active Substance: ASPIRIN
     Dosage: UNK
  13. ENALAPRIL MALEATE. [Concomitant]
     Active Substance: ENALAPRIL MALEATE
     Dosage: UNK
  14. LIPITOR [Concomitant]
     Active Substance: ATORVASTATIN CALCIUM
     Dosage: UNK
  15. RINDERON VG [Concomitant]
     Active Substance: BETAMETHASONE VALERATE\GENTAMICIN SULFATE
     Dosage: UNK

REACTIONS (2)
  - Thyroiditis [Recovering/Resolving]
  - Adrenal insufficiency [Unknown]

NARRATIVE: CASE EVENT DATE: 20150605
